FAERS Safety Report 6025340-4 (Version None)
Quarter: 2008Q4

REPORT INFORMATION
  Report Type: 
  Country: None (occurrence: None)
  Receive Date: 20081231
  Receipt Date: 20081224
  Transmission Date: 20090506
  Serious: Yes (Hospitalization)
  Sender: FDA-Public Use
  Company Number: JP-MERCK-0812USA04901

PATIENT
  Age: 80 Year
  Sex: Male

DRUGS (6)
  1. FOSAMAX [Suspect]
     Indication: OSTEOPOROSIS
     Route: 048
     Dates: start: 20080901
  2. FOSAMAX [Suspect]
     Route: 048
     Dates: end: 20080901
  3. COTRIM [Suspect]
     Indication: OPPORTUNISTIC INFECTION PROPHYLAXIS
     Route: 048
  4. ISCOTIN [Concomitant]
     Indication: ANTIBIOTIC PROPHYLAXIS
     Route: 048
  5. MORPHINE HYDROCHLORIDE [Concomitant]
     Route: 065
  6. TRACLEER [Concomitant]
     Indication: PULMONARY HYPERTENSION
     Route: 048

REACTIONS (1)
  - PANCYTOPENIA [None]
